FAERS Safety Report 6866106-2 (Version None)
Quarter: 2010Q3

REPORT INFORMATION
  Report Type: 
  Country: None (occurrence: None)
  Receive Date: 20100722
  Receipt Date: 20100714
  Transmission Date: 20110219
  Serious: Yes (Other)
  Sender: FDA-Public Use
  Company Number: GB-ELI_LILLY_AND_COMPANY-GB201007002804

PATIENT
  Age: 55 Year
  Sex: Female
  Weight: 123 kg

DRUGS (7)
  1. BYETTA [Suspect]
     Indication: DIABETES MELLITUS
     Dosage: 5 UG, UNKNOWN
     Route: 058
     Dates: start: 20100521
  2. GLICLAZIDE [Concomitant]
     Indication: DIABETES MELLITUS
     Dosage: 24 MG, DAILY (1/D)
     Route: 048
     Dates: start: 19950914
  3. METFORMIN [Concomitant]
     Indication: DIABETES MELLITUS
     Dosage: 850 MG, 3/D
     Route: 048
     Dates: start: 19970410
  4. QUININE [Concomitant]
     Indication: MUSCLE SPASMS
     Dosage: 200 MG, UNKNOWN
     Route: 048
     Dates: start: 20030606
  5. RAMIPRIL [Concomitant]
     Indication: DIABETES MELLITUS
     Dosage: 10 MG, UNKNOWN
     Route: 048
     Dates: start: 19950914
  6. ROSIGLITAZONE [Concomitant]
     Indication: DIABETES MELLITUS
     Dosage: 8 MG, UNKNOWN
     Route: 048
     Dates: start: 20050609
  7. SIMVASTATIN [Concomitant]
     Indication: DIABETES MELLITUS
     Dosage: 40 MG, UNKNOWN
     Route: 048
     Dates: start: 20050627

REACTIONS (1)
  - DEPRESSED MOOD [None]
